FAERS Safety Report 22278757 (Version 2)
Quarter: 2024Q4

REPORT INFORMATION
  Report Type: Spontaneous
  Country: US (occurrence: US)
  Receive Date: 20230503
  Receipt Date: 20241007
  Transmission Date: 20250115
  Serious: Yes (Hospitalization)
  Sender: MYLAN
  Company Number: US-MYLANLABS-2023M1046614

PATIENT
  Age: 61 Year
  Sex: Female

DRUGS (2)
  1. SERTRALINE [Suspect]
     Active Substance: SERTRALINE HYDROCHLORIDE
     Indication: Product used for unknown indication
     Dosage: UNK, INITIAL DOSE NOT STATED
     Route: 065
  2. SERTRALINE [Suspect]
     Active Substance: SERTRALINE HYDROCHLORIDE
     Dosage: 100 MILLIGRAM, QD, DOSE INCREASED
     Route: 065

REACTIONS (7)
  - Long-chain acyl-coenzyme A dehydrogenase deficiency [Recovered/Resolved]
  - Syncope [Recovered/Resolved]
  - Dysphagia [Recovered/Resolved]
  - Trismus [Recovered/Resolved]
  - Rhabdomyolysis [Recovered/Resolved]
  - Metabolic acidosis [Recovered/Resolved]
  - Mitochondrial toxicity [Recovered/Resolved]
